FAERS Safety Report 8015490-5 (Version None)
Quarter: 2011Q4

REPORT INFORMATION
  Report Type: 
  Country: None (occurrence: None)
  Receive Date: 20111230
  Receipt Date: 20111227
  Transmission Date: 20120403
  Serious: Yes (Death, Other)
  Sender: FDA-Public Use
  Company Number: JP-BAYER-201013192BYL

PATIENT
  Age: 60 Year
  Sex: Male
  Weight: 70 kg

DRUGS (16)
  1. EVAMYL [Concomitant]
     Indication: INSOMNIA
     Dosage: SINCE BEFORE NEXAVAR ADMINISTRATION
     Route: 048
     Dates: end: 20101030
  2. LACTULOSE [Concomitant]
     Indication: PROPHYLAXIS
     Dosage: SINCE BEFORE NEXAVAR ADMINISTRATION
     Route: 048
     Dates: end: 20101030
  3. VERAPAMIL HCL [Concomitant]
     Dosage: SINCE BEFORE NEXAVAR ADMINISTRATION
     Route: 048
     Dates: end: 20101030
  4. LANSOPRAZOLE [Concomitant]
     Dosage: SINCE BEFORE NEXAVAR ADMINISTRATION
     Route: 048
     Dates: end: 20101030
  5. LIVACT [Concomitant]
     Dosage: SINCE BEFORE NEXAVAR ADMINISTRATION
     Route: 048
     Dates: end: 20101030
  6. ONEALFA [Concomitant]
     Dosage: SINCE BEFORE NEXAVAR ADMINISTRATION
     Route: 048
     Dates: end: 20101030
  7. ASPARTATE CALCIUM [Concomitant]
     Dosage: SINCE BEFORE NEXAVAR ADMINISTRATION
     Route: 048
     Dates: end: 20101030
  8. LASIX [Concomitant]
     Dosage: SINCE BEFORE NEXAVAR ADMINISTRATION
     Route: 048
     Dates: end: 20101030
  9. URSO 250 [Concomitant]
     Dosage: SINCE BEFORE NEXAVAR ADMINISTRATION
     Route: 048
     Dates: end: 20101030
  10. SORAFENIB [Suspect]
     Indication: HEPATIC NEOPLASM MALIGNANT
     Dosage: 200 MG BID
     Route: 048
     Dates: start: 20100602, end: 20100820
  11. ALDACTONE [Concomitant]
     Dosage: SINCE BEFORE NEXAVAR ADMINISTRATION
     Route: 048
     Dates: end: 20101030
  12. GASCON [Concomitant]
     Dosage: SINCE BEFORE NEXAVAR ADMINISTRATION
     Route: 048
     Dates: end: 20101030
  13. FALKAMIN [Concomitant]
     Dosage: DOSE PER TREATMENT DAY: 3 DF, SINCE BEFORE NEXAVAR ADMINISTRATION
     Route: 048
     Dates: end: 20101030
  14. LEVOTHYROXINE SODIUM [Concomitant]
     Indication: HYPOTHYROIDISM
     Dosage: SINCE BEFORE NEXAVAR ADMINISTRATION
     Route: 048
     Dates: end: 20101030
  15. ALENDRONATE SODIUM [Concomitant]
     Dosage: SINCE BEFORE NEXAVAR ADMINISTRATION
     Route: 048
     Dates: end: 20101030
  16. UREPEARL [Concomitant]
     Indication: PROPHYLAXIS
     Route: 061
     Dates: start: 20100602, end: 20100820

REACTIONS (4)
  - HEPATIC ENCEPHALOPATHY [None]
  - DECREASED APPETITE [None]
  - MALAISE [None]
  - HEPATIC NEOPLASM MALIGNANT [None]
